FAERS Safety Report 8003427-4 (Version None)
Quarter: 2011Q4

REPORT INFORMATION
  Report Type: 
  Country: None (occurrence: None)
  Receive Date: 20111222
  Receipt Date: 20111212
  Transmission Date: 20120403
  Serious: Yes (Other)
  Sender: FDA-Public Use
  Company Number: US-AMGEN-USASP2011059680

PATIENT
  Age: 48 Year
  Sex: Male

DRUGS (10)
  1. SULFAMETHOXAZOLE [Concomitant]
     Dosage: UNK
     Dates: start: 20111017, end: 20111027
  2. ALLOPURINOL [Concomitant]
     Dosage: UNK
     Dates: start: 20100701, end: 20111007
  3. PREDNISONE TAB [Concomitant]
     Indication: RENAL TRANSPLANT
  4. ARANESP [Suspect]
     Indication: RENAL FAILURE
     Dosage: UNK
     Dates: start: 20100301
  5. WHOLE BLOOD [Concomitant]
  6. PROCRIT [Suspect]
     Indication: RENAL FAILURE
     Dosage: 30000 IU, QWK
     Route: 058
     Dates: start: 20111019, end: 20111116
  7. AZATHIOPRINE [Concomitant]
     Dosage: UNK
     Dates: end: 20111020
  8. PROCRIT [Suspect]
     Dosage: 20000 IU, QWK
     Route: 058
     Dates: start: 20110923, end: 20111019
  9. MYCOPHENOLATE MOFETIL [Concomitant]
     Dosage: UNK
     Dates: start: 20111020
  10. TACROLIMUS [Concomitant]
     Dosage: UNK

REACTIONS (4)
  - DRUG INTERACTION [None]
  - DRUG INEFFECTIVE [None]
  - BONE MARROW TRANSPLANT [None]
  - ANAEMIA [None]
